FAERS Safety Report 17002107 (Version 1)
Quarter: 2019Q4

REPORT INFORMATION
  Report Type: Spontaneous
  Country: CN (occurrence: CN)
  Receive Date: 20191106
  Receipt Date: 20191106
  Transmission Date: 20200122
  Serious: Yes (Hospitalization)
  Sender: FDA-Public Use
  Company Number: CN-BAXTER-2019BAX022209

PATIENT
  Age: 54 Year
  Sex: Female
  Weight: 55 kg

DRUGS (10)
  1. PIRARUBICIN HYDROCHLORIDE [Suspect]
     Active Substance: PIRARUBICIN HYDROCHLORIDE
     Dosage: DOSE REINTRODUCED, DILUTED WITH 5% GLUCOSE INJECTION, Q14D
     Route: 041
  2. 0.9% SODIUM CHLORIDE INJECTION [Suspect]
     Active Substance: SODIUM CHLORIDE
     Indication: BREAST CANCER
     Dosage: DILUTED WITH CYCLOPHOSPHAMIDE 900 MG, DAY 1, Q14D
     Route: 041
     Dates: start: 20191002, end: 20191002
  3. 5% GLUCOSE  INJECTION [Suspect]
     Active Substance: DEXTROSE
     Indication: BREAST CANCER
     Dosage: DILUTED WITH PIRARUBICIN 50 MG, DAY 1, Q14D
     Route: 041
     Dates: start: 20191002, end: 20191002
  4. ENDOXAN [Suspect]
     Active Substance: CYCLOPHOSPHAMIDE
     Indication: BREAST CANCER
     Dosage: DILUTED WITH 0.9% SODIUM CHLORIDE INJECTION 100ML, Q14D
     Route: 041
     Dates: start: 20191002, end: 20191002
  5. ENDOXAN [Suspect]
     Active Substance: CYCLOPHOSPHAMIDE
     Dosage: DILUTED WITH 0.9% SODIUM CHLORIDE INJECTION Q14D
     Route: 041
  6. PIRARUBICIN HYDROCHLORIDE [Suspect]
     Active Substance: PIRARUBICIN HYDROCHLORIDE
     Dosage: DILUTED WITH 5% GLUCOSE INJECTION 100ML, DAY 2, Q14D
     Route: 041
     Dates: start: 20191003, end: 20191003
  7. 5% GLUCOSE  INJECTION [Suspect]
     Active Substance: DEXTROSE
     Dosage: DOSE REINTRODUCED, DILUTED WITH PIRARUBICIN, Q14D
     Route: 041
  8. 0.9% SODIUM CHLORIDE INJECTION [Suspect]
     Active Substance: SODIUM CHLORIDE
     Dosage: DOSE REINTRODUCED, DILUTED WITH CYCLOPHOSPHAMIDE, Q14D
     Route: 041
  9. 5% GLUCOSE  INJECTION [Suspect]
     Active Substance: DEXTROSE
     Dosage: DILUTED WITH PIRARUBICIN 40 MG, DAY 2, Q14D
     Route: 041
     Dates: start: 20191003, end: 20191003
  10. PIRARUBICIN HYDROCHLORIDE [Suspect]
     Active Substance: PIRARUBICIN HYDROCHLORIDE
     Indication: BREAST CANCER
     Dosage: DILUTED WITH 5% GLUCOSE INJECTION 100ML, DAY 1, Q14D
     Route: 041
     Dates: start: 20191002, end: 20191002

REACTIONS (1)
  - Bone marrow failure [Recovered/Resolved]

NARRATIVE: CASE EVENT DATE: 20191015
